FAERS Safety Report 8029796-7 (Version None)
Quarter: 2012Q1

REPORT INFORMATION
  Report Type: 
  Country: None (occurrence: None)
  Receive Date: 20120109
  Receipt Date: 20111228
  Transmission Date: 20120608
  Serious: Yes (Other)
  Sender: FDA-Public Use
  Company Number: US-ELI_LILLY_AND_COMPANY-US201201000585

PATIENT
  Sex: Female

DRUGS (9)
  1. MULTI-VITAMIN [Concomitant]
  2. FORTEO [Suspect]
     Indication: OSTEOPOROSIS
     Dosage: 20 UG, QD
     Dates: start: 20110615
  3. LOVAZA [Concomitant]
  4. SERTRALINE HYDROCHLORIDE [Concomitant]
     Dosage: 25 MG, QD
  5. CITRACAL [Concomitant]
  6. FORTEO [Suspect]
     Dosage: 20 UG, QD
     Dates: end: 20111117
  7. ARTHROTEC [Concomitant]
     Dosage: 75 MG, BID
  8. GLUCOSAMINE [Concomitant]
  9. LORATADINE [Concomitant]
     Dosage: 10 MG, QD

REACTIONS (1)
  - BREAST CANCER [None]
